FAERS Safety Report 16129408 (Version 1)
Quarter: 2019Q1

REPORT INFORMATION
  Report Type: Spontaneous
  Country: FR (occurrence: FR)
  Receive Date: 20190328
  Receipt Date: 20190328
  Transmission Date: 20190418
  Serious: Yes (Life-Threatening)
  Sender: FDA-Public Use
  Company Number: FR-TEVA-2019-FR-1028985

PATIENT
  Age: 73 Year
  Sex: Male
  Weight: 90 kg

DRUGS (15)
  1. PREGABALINE TEVA 50 MG, G?LULE [Suspect]
     Active Substance: PREGABALIN
     Indication: NEURALGIA
     Dosage: 3 DOSAGE FORMS DAILY;
     Route: 048
     Dates: start: 2017, end: 20190104
  2. LEVEMIR [Concomitant]
     Active Substance: INSULIN DETEMIR
  3. UMULINE [Concomitant]
     Active Substance: INSULIN HUMAN
  4. BISOPROLOL (HEMIFUMARATE DE) [Concomitant]
     Active Substance: BISOPROLOL FUMARATE
  5. PANTOPRAZOLE [Concomitant]
     Active Substance: PANTOPRAZOLE
  6. LEVOTHYROX [Concomitant]
     Active Substance: LEVOTHYROXINE
  7. ESCITALOPRAM ARROW 5 MG, COMPRIM? PELLICUL? [Suspect]
     Active Substance: ESCITALOPRAM OXALATE
     Indication: DEPRESSION
     Dosage: 1 DOSAGE FORMS DAILY;
     Route: 048
     Dates: start: 2017, end: 20190104
  8. FUROSEMIDE ARROW 40 MG, COMPRIM? S?CABLE [Suspect]
     Active Substance: FUROSEMIDE
     Indication: HYPERTENSION
     Dosage: 40 MILLIGRAM DAILY;
     Route: 048
     Dates: start: 2015, end: 20190104
  9. GALVUS [Concomitant]
     Active Substance: VILDAGLIPTIN
  10. AMLODIPINE [Concomitant]
     Active Substance: AMLODIPINE BESYLATE
  11. ALLOPURINOL ARROW 100 MG, COMPRIM? [Suspect]
     Active Substance: ALLOPURINOL
     Indication: GOUT
     Dosage: 1 DOSAGE FORMS DAILY;
     Route: 048
     Dates: start: 2017, end: 20190103
  12. PREVISCAN 20 MG, COMPRIM? S?CABLE [Suspect]
     Active Substance: FLUINDIONE
     Indication: ATRIAL FIBRILLATION
     Dosage: 1.5 DOSAGE FORMS DAILY;
     Route: 048
     Dates: start: 201810, end: 20181231
  13. KARDEGIC [Suspect]
     Active Substance: ASPIRIN DL-LYSINE
     Indication: ISCHAEMIC STROKE
     Dosage: 1 DOSAGE FORMS DAILY;
     Route: 048
     Dates: start: 201810
  14. IMOVANE [Suspect]
     Active Substance: ZOPICLONE
     Indication: INSOMNIA
     Dosage: 1 DOSAGE FORMS DAILY;
     Route: 048
     Dates: start: 2018, end: 20190103
  15. XATRAL [Concomitant]
     Active Substance: ALFUZOSIN

REACTIONS (4)
  - Anaemia [Recovered/Resolved]
  - Haematuria [Recovered/Resolved]
  - Haematoma [Recovered/Resolved]
  - Acute coronary syndrome [Recovered/Resolved with Sequelae]

NARRATIVE: CASE EVENT DATE: 201812
